FAERS Safety Report 20770108 (Version 1)
Quarter: 2022Q2

REPORT INFORMATION
  Report Type: Spontaneous
  Country: FR (occurrence: FR)
  Receive Date: 20220429
  Receipt Date: 20220429
  Transmission Date: 20220720
  Serious: Yes (Hospitalization)
  Sender: FDA-Public Use
  Company Number: None

PATIENT
  Age: 17 Year
  Sex: Female
  Weight: 58 kg

DRUGS (4)
  1. ALPRAZOLAM [Suspect]
     Active Substance: ALPRAZOLAM
     Indication: Poisoning deliberate
     Dosage: SCORED TABLET, FREQUENCY TIME: 1 TOTAL, DURATION : 1 DAY, 0.25 MG
     Route: 048
     Dates: start: 20200815, end: 20200815
  2. ZOPICLONE [Suspect]
     Active Substance: ZOPICLONE
     Indication: Poisoning deliberate
     Dosage: FREQUENCY TIME : 1 TOTAL, DURATION: 1 DAY
     Route: 048
     Dates: start: 20200815, end: 20200815
  3. ACETAMINOPHEN [Suspect]
     Active Substance: ACETAMINOPHEN
     Indication: Poisoning deliberate
     Dosage: UNIT DOSE: 1 GRAM, FREQUENCY TIME : 1 TOTAL, DURATION : 1 DAY
     Route: 048
     Dates: start: 20200815, end: 20200815
  4. ATARAX [Suspect]
     Active Substance: HYDROXYZINE HYDROCHLORIDE
     Indication: Poisoning deliberate
     Dosage: SCORED FILM-COATED TABLET, STRENGTH: 25 MG, FREQUENCY TIME: 1 TOTAL, DURATION : 1 DAY
     Route: 048
     Dates: start: 20200815, end: 20200815

REACTIONS (2)
  - Poisoning deliberate [Recovered/Resolved]
  - Coma [Unknown]

NARRATIVE: CASE EVENT DATE: 20200815
